FAERS Safety Report 6079048-X (Version None)
Quarter: 2009Q1

REPORT INFORMATION
  Report Type: 
  Country: None (occurrence: None)
  Receive Date: 20090216
  Receipt Date: 20090203
  Transmission Date: 20090719
  Serious: Yes (Hospitalization)
  Sender: FDA-Public Use
  Company Number: FR-ROCHE-604338

PATIENT
  Sex: Female

DRUGS (9)
  1. BONIVA [Suspect]
     Indication: DRUG USE FOR UNKNOWN INDICATION
     Dosage: FORM: INJECTABLE SOLUTION. DOSAGE: 3MG/3ML
     Route: 042
     Dates: start: 20081114
  2. FORADIL [Concomitant]
     Indication: ASTHMA
  3. EUPRESSYL [Concomitant]
     Route: 048
  4. CATAPRESSAN [Concomitant]
     Route: 048
  5. COAPROVEL [Concomitant]
     Dosage: DOSE FOR HYDROCHLOROTHIAZIDE/IRBESARTAN: 300/12.5
     Route: 048
  6. EFFEXOR [Concomitant]
     Dosage: DOSE REPORTED: 37.5 TWICE.
     Route: 048
  7. MIFLASONE [Concomitant]
     Indication: ASTHMA
     Route: 055
  8. SINGULAIR [Concomitant]
     Indication: ASTHMA
     Route: 048
  9. ATARAX [Concomitant]
     Indication: ANXIETY
     Route: 048

REACTIONS (3)
  - ASTHMA [None]
  - BONE PAIN [None]
  - MYALGIA [None]
